FAERS Safety Report 20136841 (Version 8)
Quarter: 2022Q4

REPORT INFORMATION
  Report Type: Report from Study
  Country: FR (occurrence: FR)
  Receive Date: 20211201
  Receipt Date: 20221208
  Transmission Date: 20230112
  Serious: Yes (Death, Hospitalization)
  Sender: FDA-Public Use
  Company Number: FR-EXELIXIS-XL18421045491

PATIENT
  Age: 58 Year
  Sex: Male
  Weight: 62.6 kg

DRUGS (11)
  1. CABOZANTINIB [Suspect]
     Active Substance: CABOZANTINIB
     Indication: Hormone-refractory prostate cancer
     Dosage: 40 MG, QD
     Route: 048
     Dates: start: 20210309, end: 20211105
  2. ATEZOLIZUMAB [Suspect]
     Active Substance: ATEZOLIZUMAB
     Indication: Hormone-refractory prostate cancer
     Dosage: 1200 MG, Q3WEEKS
     Route: 042
     Dates: start: 20210309, end: 20211105
  3. FENTANYL [Concomitant]
     Active Substance: FENTANYL
  4. MORPHINE SULFATE [Concomitant]
     Active Substance: MORPHINE SULFATE
  5. Paracetamol + aceclofenac [Concomitant]
  6. Folic acid + iodine complex [Concomitant]
  7. VOGALENE [Concomitant]
     Active Substance: METOPIMAZINE
  8. Orocal vitamine d3 [Concomitant]
  9. PRIMPERAN [Concomitant]
     Active Substance: METOCLOPRAMIDE HYDROCHLORIDE
  10. MONTMORILLONITE [Concomitant]
     Active Substance: MONTMORILLONITE
  11. EBASTINE [Concomitant]
     Active Substance: EBASTINE

REACTIONS (3)
  - Ischaemic cardiomyopathy [Not Recovered/Not Resolved]
  - Septic shock [Recovered/Resolved]
  - Malignant neoplasm progression [Fatal]

NARRATIVE: CASE EVENT DATE: 20211020
